FAERS Safety Report 5767083-8 (Version None)
Quarter: 2008Q2

REPORT INFORMATION
  Report Type: 
  Country: None (occurrence: None)
  Receive Date: 20080612
  Receipt Date: 20080604
  Transmission Date: 20081010
  Serious: Yes (Other)
  Sender: FDA-Public Use
  Company Number: US-JNJFOC-20071104769

PATIENT
  Age: 50 Year
  Sex: Female
  Weight: 56.7 kg

DRUGS (8)
  1. TOPAMAX [Suspect]
     Route: 048
  2. TOPAMAX [Suspect]
     Dosage: 25 MG IN THE AM, 50 MG IN THE PM
     Route: 048
  3. TOPAMAX [Suspect]
     Indication: MIGRAINE PROPHYLAXIS
     Dosage: UNSPECIFIED LOWER DOSAGE TAKEN BEFORE PATIENT TITRATED UP TO 75 MG/DAY
     Route: 048
  4. IMITREX [Concomitant]
     Indication: MIGRAINE PROPHYLAXIS
     Route: 048
  5. PROGESTERONE [Concomitant]
     Indication: HORMONE REPLACEMENT THERAPY
     Route: 048
  6. CLIMARA [Concomitant]
     Indication: HORMONE REPLACEMENT THERAPY
     Route: 062
  7. ALLERGY MEDICATION [Concomitant]
     Indication: SEASONAL ALLERGY
     Route: 048
  8. ESTROGEN [Concomitant]
     Indication: HORMONE REPLACEMENT THERAPY
     Route: 048

REACTIONS (7)
  - BLEPHAROSPASM [None]
  - DRY EYE [None]
  - DYSARTHRIA [None]
  - MENTAL IMPAIRMENT [None]
  - NEUROPATHY PERIPHERAL [None]
  - PERIPHERAL VASCULAR DISORDER [None]
  - SKIN DISCOLOURATION [None]
